FAERS Safety Report 4277207-X (Version None)
Quarter: 2004Q1

REPORT INFORMATION
  Report Type: 
  Country: None (occurrence: None)
  Receive Date: 20040120
  Receipt Date: 20040112
  Transmission Date: 20041129
  Serious: Yes (Hospitalization)
  Sender: FDA-Public Use
  Company Number: 200410029BVD

PATIENT
  Age: 72 Year
  Sex: Female
  Weight: 60 kg

DRUGS (10)
  1. ASPIRIN [Suspect]
     Dosage: 100 MG TOTAL DAILY ORAL
     Route: 048
  2. ALLOPURINOL [Suspect]
     Dosage: ORAL
     Route: 048
     Dates: start: 20020318, end: 20020415
  3. FUROSEMIDE [Suspect]
     Dosage: ORAL
     Route: 048
  4. BROMAZANIL (BROMAZEPAM) [Suspect]
     Dosage: ORAL
     Route: 048
  5. SOTALEX [Concomitant]
  6. ENAHEXAL [Concomitant]
  7. PANTOZOL [Concomitant]
  8. ESTROGEN NOS [Concomitant]
  9. VENOSTASIN [Concomitant]
  10. INSULIN ACTRAPHANE [Concomitant]

REACTIONS (2)
  - CHILLS [None]
  - STEVENS-JOHNSON SYNDROME [None]
